FAERS Safety Report 9701222 (Version 2)
Quarter: 2013Q4

REPORT INFORMATION
  Report Type: Spontaneous
  Country: US (occurrence: US)
  Receive Date: 20131121
  Receipt Date: 20131121
  Transmission Date: 20140711
  Serious: No
  Sender: FDA-Public Use
  Company Number: US-GILEAD-2008-0015881

PATIENT
  Age: 76 Year
  Sex: Female
  Weight: 70.31 kg

DRUGS (11)
  1. LETAIRIS [Suspect]
     Indication: PULMONARY ARTERIAL HYPERTENSION
     Route: 048
     Dates: start: 20080226
  2. INDERAL [Concomitant]
     Route: 048
  3. PLAVIX [Concomitant]
     Route: 048
  4. NEXIUM [Concomitant]
     Route: 048
  5. SIMVASTIN [Concomitant]
     Route: 048
  6. DIAZEPAM [Concomitant]
     Route: 048
  7. SUCRALFATE [Concomitant]
     Route: 048
  8. NASACORT [Concomitant]
     Route: 048
  9. CENTRUM SILVER [Concomitant]
     Route: 048
  10. LASIX [Concomitant]
  11. KLOR-CON [Concomitant]

REACTIONS (2)
  - Tinnitus [Recovered/Resolved]
  - Flushing [None]
